FAERS Safety Report 12982856 (Version 2)
Quarter: 2016Q4

REPORT INFORMATION
  Report Type: Spontaneous
  Country: FR (occurrence: FR)
  Receive Date: 20161129
  Receipt Date: 20161208
  Transmission Date: 20170207
  Serious: Yes (Death, Life-Threatening, Other)
  Sender: FDA-Public Use
  Company Number: FR-ASTRAZENECA-2016SF25127

PATIENT
  Age: 22734 Day
  Sex: Male

DRUGS (6)
  1. ERYTHROCINE [Suspect]
     Active Substance: ERYTHROMYCIN
     Indication: IMPAIRED GASTRIC EMPTYING
     Route: 042
     Dates: start: 20161031, end: 20161105
  2. BISOCE [Concomitant]
     Active Substance: BISOPROLOL
     Route: 048
     Dates: start: 20161025, end: 20161109
  3. SIMVASTATIN. [Concomitant]
     Active Substance: SIMVASTATIN
     Indication: DYSLIPIDAEMIA
     Dosage: 40 MG/D
  4. INEXIUM [Suspect]
     Active Substance: ESOMEPRAZOLE
     Indication: OESOPHAGITIS
     Dosage: 40MG/D, UNKNOWN
     Route: 048
     Dates: start: 20161021, end: 20161103
  5. LASILIX [Concomitant]
     Active Substance: FUROSEMIDE
  6. KARDEGIC [Suspect]
     Active Substance: ASPIRIN LYSINE
     Indication: PROPHYLAXIS
     Dosage: 75MG/D UNKNOWN
     Route: 065
     Dates: start: 20161019, end: 20161109

REACTIONS (6)
  - Sepsis [Unknown]
  - Toxic epidermal necrolysis [Fatal]
  - Multiple organ dysfunction syndrome [Fatal]
  - Enterococcal infection [Unknown]
  - Acute kidney injury [Unknown]
  - Impaired gastric emptying [Unknown]

NARRATIVE: CASE EVENT DATE: 20161105
